FAERS Safety Report 10501128 (Version 1)
Quarter: 2014Q4

REPORT INFORMATION
  Report Type: Spontaneous
  Country: US (occurrence: None)
  Receive Date: 20141003
  Receipt Date: 20141003
  Transmission Date: 20150528
  Serious: Yes (Disabling)
  Sender: FDA-Public Use
  Company Number: None

PATIENT
  Age: 67 Year
  Sex: Male
  Weight: 90.27 kg

DRUGS (2)
  1. CIALIS [Suspect]
     Active Substance: TADALAFIL
     Indication: ERECTILE DYSFUNCTION
     Dosage: 1 TAB, ONCE DAILY, TAKEN BY MOUTH
     Route: 048
     Dates: start: 20140912, end: 20140923
  2. CIALIS [Suspect]
     Active Substance: TADALAFIL
     Indication: BENIGN PROSTATIC HYPERPLASIA
     Dosage: 1 TAB, ONCE DAILY, TAKEN BY MOUTH
     Route: 048
     Dates: start: 20140912, end: 20140923

REACTIONS (2)
  - Hypoacusis [None]
  - Back pain [None]

NARRATIVE: CASE EVENT DATE: 20140923
